FAERS Safety Report 16106852 (Version 1)
Quarter: 2019Q1

REPORT INFORMATION
  Report Type: Spontaneous
  Country: US (occurrence: US)
  Receive Date: 20190322
  Receipt Date: 20190322
  Transmission Date: 20190418
  Serious: No
  Sender: FDA-Public Use
  Company Number: US-B.I. PHARMACEUTICALS,INC./RIDGEFIELD-2019-BI-011776

PATIENT
  Age: 67 Year
  Sex: Female

DRUGS (11)
  1. SPIRONOLACTONE. [Concomitant]
     Active Substance: SPIRONOLACTONE
     Indication: ADRENAL DISORDER
     Dosage: 1 TABLET 4 TIMES A DAY;  FORM STRENGTH: 50 MG; FORMULATION: TABLET
     Route: 048
  2. ATORVASTATIN [Concomitant]
     Active Substance: ATORVASTATIN
     Indication: BLOOD CHOLESTEROL INCREASED
     Dosage: 1 TABLET ONCE A DAY;  FORM STRENGTH: 40 MG; FORMULATION: TABLET
     Route: 048
  3. TRADJENTA [Suspect]
     Active Substance: LINAGLIPTIN
     Indication: TYPE 2 DIABETES MELLITUS
     Dosage: 1 TABLET ONCE A DAY;  FORM STRENGTH: 5 MG; FORMULATION: TABLET
     Route: 048
  4. ALLOPURINOL. [Concomitant]
     Active Substance: ALLOPURINOL
     Indication: GOUT
     Dosage: 1 TABLET ONCE DAILY;  FORM STRENGTH: 100 MG; FORMULATION: TABLET
     Route: 048
  5. SYMBICORT [Concomitant]
     Active Substance: BUDESONIDE\FORMOTEROL FUMARATE DIHYDRATE
     Indication: ASTHMA
     Dosage: FORMULATION: INHALATION SPRAY;
     Route: 055
  6. COMBIVENT [Suspect]
     Active Substance: ALBUTEROL SULFATE\IPRATROPIUM BROMIDE
     Indication: ASTHMA
     Dosage: 1 PUFF UP TO 6 TIMES A DAY;  FORM STRENGTH: 20 MCG / 100 MCG;
     Route: 048
  7. PROLIA [Concomitant]
     Active Substance: DENOSUMAB
     Indication: OSTEOPOROSIS
     Dosage: 1 INJECTION EVERY 6 MONTHS;  FORM STRENGTH: 60 MG; FORMULATION: SUBCUTANEOUS
     Route: 058
  8. LABETALOL [Concomitant]
     Active Substance: LABETALOL\LABETALOL HYDROCHLORIDE
     Indication: HYPERTENSION
     Dosage: 1 TABLET ONCE A DAY;  FORM STRENGTH: 100 MG; FORMULATION: TABLET
     Route: 048
  9. HYDROCHLOROTHIAZIDE. [Concomitant]
     Active Substance: HYDROCHLOROTHIAZIDE
     Indication: HYPERTENSION
     Dosage: FORMULATION: TABLET;
     Route: 048
  10. NEXIUM [Concomitant]
     Active Substance: ESOMEPRAZOLE MAGNESIUM
     Indication: GASTROOESOPHAGEAL REFLUX DISEASE
     Dosage: 1 CAPSULE TWICE A DAY;  FORM STRENGTH: 40 MG; FORMULATION: CAPSULE
     Route: 048
  11. WELLBUTRIN [Concomitant]
     Active Substance: BUPROPION HYDROCHLORIDE
     Indication: DEPRESSION
     Dosage: 1 TABLET ONCE A DAY;  FORM STRENGTH: 300 MG; FORMULATION: TABLET
     Route: 048

REACTIONS (2)
  - Pneumonia [Recovered/Resolved]
  - Off label use [Unknown]

NARRATIVE: CASE EVENT DATE: 20190228
